FAERS Safety Report 10286047 (Version 1)
Quarter: 2014Q3

REPORT INFORMATION
  Report Type: Spontaneous
  Country: US (occurrence: None)
  Receive Date: 20140703
  Receipt Date: 20140703
  Transmission Date: 20150326
  Serious: Yes (Other)
  Sender: FDA-Public Use
  Company Number: US-H14001-14-00155

PATIENT
  Age: 53 Year
  Sex: Male

DRUGS (3)
  1. MIDAZOLAM (MIDAZOLAM) (UNKNOWN) (MIDAZOLAM) [Concomitant]
  2. FENTANYL. [Suspect]
     Active Substance: FENTANYL
     Indication: PRODUCT USED FOR UNKNOWN INDICATION
     Dosage: 125MCG/H, INTRAVENOUS DRIP
     Route: 041
  3. ATRACURIUM (ATRACURIUM) [Concomitant]

REACTIONS (2)
  - Serotonin syndrome [None]
  - Rhabdomyolysis [None]
